FAERS Safety Report 9142982 (Version 1)
Quarter: 2013Q1

REPORT INFORMATION
  Report Type: Spontaneous
  Country: US (occurrence: US)
  Receive Date: 20130306
  Receipt Date: 20130306
  Transmission Date: 20140127
  Serious: No
  Sender: FDA-Public Use
  Company Number: US-PFIZER INC-2013075649

PATIENT
  Age: 4 Month
  Sex: Female
  Weight: 6.8 kg

DRUGS (3)
  1. ADVIL [Suspect]
     Indication: PYREXIA
     Dosage: 0.625 ML, EVERY 8 HOURS
     Dates: start: 20130303
  2. ADVIL [Suspect]
     Indication: PAIN
  3. ADVIL [Suspect]
     Indication: INFLUENZA

REACTIONS (2)
  - Rash [Not Recovered/Not Resolved]
  - Dysphonia [Recovered/Resolved]
